FAERS Safety Report 5156973-5 (Version None)
Quarter: 2006Q4

REPORT INFORMATION
  Report Type: 
  Country: None (occurrence: None)
  Receive Date: 20061124
  Receipt Date: 20061117
  Transmission Date: 20070319
  Serious: Yes (Other)
  Sender: FDA-Public Use
  Company Number: CN-ROCHE-471894

PATIENT
  Age: 25 Year
  Sex: Female

DRUGS (1)
  1. XENICAL [Suspect]
     Indication: OBESITY
     Route: 048
     Dates: start: 20060115, end: 20061115

REACTIONS (2)
  - ASTHMA [None]
  - UPPER RESPIRATORY TRACT INFECTION [None]
